FAERS Safety Report 5855533-8 (Version None)
Quarter: 2008Q3

REPORT INFORMATION
  Report Type: 
  Country: None (occurrence: None)
  Receive Date: 20080821
  Receipt Date: 20080807
  Transmission Date: 20090109
  Serious: Yes (Hospitalization)
  Sender: FDA-Public Use
  Company Number: 2008BI020338

PATIENT
  Age: 49 Year
  Sex: Female

DRUGS (1)
  1. TYSABRI [Suspect]
     Indication: MULTIPLE SCLEROSIS
     Dosage: 30 UG;QW;IV
     Route: 042
     Dates: start: 20080514

REACTIONS (3)
  - EAR INFECTION [None]
  - LOWER EXTREMITY MASS [None]
  - STAPHYLOCOCCAL INFECTION [None]
